FAERS Safety Report 9520401 (Version 1)
Quarter: 2013Q3

REPORT INFORMATION
  Report Type: Spontaneous
  Country: JP (occurrence: JP)
  Receive Date: 20130912
  Receipt Date: 20130912
  Transmission Date: 20140515
  Serious: Yes (Hospitalization)
  Sender: FDA-Public Use
  Company Number: JP-BIOMARINAP-JP-2013-101488

PATIENT
  Age: 43 Year
  Sex: Female
  Weight: 63.4 kg

DRUGS (5)
  1. KUVAN [Suspect]
     Indication: PHENYLKETONURIA
     Dosage: 30 MG, QD
     Route: 048
  2. EC DOPARL [Concomitant]
     Indication: PARKINSON^S DISEASE
     Dosage: 150 MG, UNK
     Route: 048
  3. CERCINE [Concomitant]
     Indication: PARKINSON^S DISEASE
     Dosage: 2 MG, UNK
     Route: 048
  4. LOXONIN [Concomitant]
     Indication: HEADACHE
     Dosage: 60 MG, UNK
     Route: 048
  5. DEPAKENE-R [Concomitant]
     Indication: MIGRAINE
     Dosage: 200 MG, UNK
     Route: 048
     Dates: start: 20121002

REACTIONS (1)
  - Migraine [Recovering/Resolving]
